FAERS Safety Report 20882476 (Version 4)
Quarter: 2023Q1

REPORT INFORMATION
  Report Type: Spontaneous
  Country: CA (occurrence: CA)
  Receive Date: 20220527
  Receipt Date: 20230307
  Transmission Date: 20230418
  Serious: Yes (Hospitalization)
  Sender: FDA-Public Use
  Company Number: CA-PFIZER INC-202200743584

PATIENT
  Age: 4 Year
  Sex: Male

DRUGS (3)
  1. NIVESTYM [Suspect]
     Active Substance: FILGRASTIM-AAFI
     Indication: Rhabdomyosarcoma
     Dosage: 81 IU, DAILY (10 DAYS (13 REPEAT))
     Route: 058
  2. NIVESTYM [Suspect]
     Active Substance: FILGRASTIM-AAFI
     Dosage: 300 UG/ML, DAILY
     Dates: start: 20220606, end: 2022
  3. NIVESTYM [Suspect]
     Active Substance: FILGRASTIM-AAFI
     Dosage: 300 UG/ML, DAILY
     Dates: start: 20221227

REACTIONS (3)
  - Hospitalisation [Unknown]
  - Neoplasm progression [Unknown]
  - Off label use [Unknown]
